FAERS Safety Report 11631209 (Version 2)
Quarter: 2016Q2

REPORT INFORMATION
  Report Type: Report from Study
  Country: AR (occurrence: AR)
  Receive Date: 20151014
  Receipt Date: 20160522
  Transmission Date: 20160815
  Serious: Yes (Death, Hospitalization, Other)
  Sender: FDA-Public Use
  Company Number: PHHY2015AR060156

PATIENT
  Age: 47 Year
  Sex: Female

DRUGS (2)
  1. TASIGNA [Suspect]
     Active Substance: NILOTINIB
     Indication: PRODUCT USED FOR UNKNOWN INDICATION
     Dosage: 400 OT, QD
     Route: 048
     Dates: start: 201508, end: 201508
  2. DASATINIB [Suspect]
     Active Substance: DASATINIB
     Indication: PRODUCT USED FOR UNKNOWN INDICATION
     Dosage: UNK
     Route: 065
     Dates: start: 201508

REACTIONS (6)
  - Liver disorder [Recovered/Resolved]
  - Bone pain [Not Recovered/Not Resolved]
  - Osteoarthritis [Unknown]
  - Death [Fatal]
  - Malaise [Unknown]
  - Pain in extremity [Unknown]

NARRATIVE: CASE EVENT DATE: 201508
